FAERS Safety Report 6534957-X (Version None)
Quarter: 2010Q1

REPORT INFORMATION
  Report Type: 
  Country: None (occurrence: None)
  Receive Date: 20100111
  Receipt Date: 20100111
  Transmission Date: 20100710
  Serious: Yes (Hospitalization)
  Sender: FDA-Public Use
  Company Number: None

PATIENT
  Age: 50 Year
  Sex: Male
  Weight: 89 kg

DRUGS (2)
  1. QUETIAPINE [Suspect]
     Indication: BIPOLAR DISORDER
     Dosage: 50 MG AT BEDTIME PO
     Route: 048
     Dates: start: 20090603
  2. QUETIAPINE [Suspect]
     Indication: MANIA
     Dosage: 50 MG AT BEDTIME PO
     Route: 048
     Dates: start: 20090603

REACTIONS (2)
  - CELLULITIS [None]
  - NEUTROPENIA [None]
